FAERS Safety Report 6949036-7 (Version None)
Quarter: 2010Q3

REPORT INFORMATION
  Report Type: 
  Country: None (occurrence: None)
  Receive Date: 20100828
  Receipt Date: 20100112
  Transmission Date: 20110219
  Serious: No
  Sender: FDA-Public Use
  Company Number: US-ABBOTT-09P-163-0612767-00

PATIENT
  Sex: Female
  Weight: 72.64 kg

DRUGS (15)
  1. NIASPAN [Suspect]
     Indication: LDL/HDL RATIO
     Route: 048
     Dates: start: 20091117, end: 20091125
  2. NIASPAN [Suspect]
     Route: 048
     Dates: start: 20091129
  3. EVISTA [Concomitant]
     Indication: FIBROCYSTIC BREAST DISEASE
     Route: 048
  4. SIMVASTATIN [Concomitant]
     Indication: BLOOD CHOLESTEROL
     Route: 048
  5. METFORMIN HCL [Concomitant]
     Indication: GLUCOSE TOLERANCE IMPAIRED
     Route: 048
  6. MICARDIS HCT [Concomitant]
     Indication: HYPERTENSION
     Dosage: 80/12.5
     Route: 048
  7. BISOPROLOL [Concomitant]
     Indication: HYPERTENSION
     Dosage: 5/6.25
     Route: 048
  8. ASPIRIN [Concomitant]
     Indication: PROPHYLAXIS
     Route: 048
  9. ASPIRIN [Concomitant]
     Indication: CARDIOVASCULAR EVENT PROPHYLAXIS
  10. ASPIRIN [Concomitant]
     Indication: FLUSHING
  11. CALCIUM W/VITAMIN D NOS [Concomitant]
     Indication: MINERAL SUPPLEMENTATION
     Dosage: 630/400
     Route: 048
  12. CO Q10 [Concomitant]
     Indication: PRODUCT USED FOR UNKNOWN INDICATION
  13. MULTI-VITAMIN [Concomitant]
     Indication: PRODUCT USED FOR UNKNOWN INDICATION
  14. LOVAZA [Concomitant]
     Indication: PRODUCT USED FOR UNKNOWN INDICATION
  15. VITAMIN D [Concomitant]
     Indication: PRODUCT USED FOR UNKNOWN INDICATION

REACTIONS (2)
  - DYSGEUSIA [None]
  - INCORRECT DRUG ADMINISTRATION DURATION [None]
